FAERS Safety Report 4414444-5 (Version None)
Quarter: 2004Q3

REPORT INFORMATION
  Report Type: 
  Country: None (occurrence: None)
  Receive Date: 20040803
  Receipt Date: 20030605
  Transmission Date: 20050211
  Serious: Yes (Disabling)
  Sender: FDA-Public Use
  Company Number: US-MERCK-0306USA00881

PATIENT
  Age: 48 Year
  Sex: Female
  Weight: 82 kg

DRUGS (5)
  1. TYLENOL [Concomitant]
     Route: 065
  2. ZYRTEC [Concomitant]
     Indication: PAIN
     Route: 065
  3. ZYRTEC [Concomitant]
     Indication: SWELLING
     Route: 065
  4. VIOXX [Suspect]
     Indication: ARTHRITIS
     Route: 048
     Dates: start: 20010201, end: 20010101
  5. VIOXX [Suspect]
     Indication: PAIN
     Route: 048
     Dates: start: 20010201, end: 20010101

REACTIONS (14)
  - ABDOMINAL DISCOMFORT [None]
  - ABDOMINAL PAIN UPPER [None]
  - ADVERSE EVENT [None]
  - BLOOD PRESSURE INCREASED [None]
  - CHEST PAIN [None]
  - DIABETES MELLITUS [None]
  - DYSPEPSIA [None]
  - EMOTIONAL DISTRESS [None]
  - GASTRIC DISORDER [None]
  - GASTROOESOPHAGEAL REFLUX DISEASE [None]
  - LIVER DISORDER [None]
  - MEMORY IMPAIRMENT [None]
  - NAUSEA [None]
  - PANCREATITIS [None]
